FAERS Safety Report 9618337 (Version 2)
Quarter: 2013Q4

REPORT INFORMATION
  Report Type: Spontaneous
  Country: FR (occurrence: FR)
  Receive Date: 20131014
  Receipt Date: 20131014
  Transmission Date: 20140711
  Serious: Yes (Hospitalization, Other)
  Sender: FDA-Public Use
  Company Number: FR-ROCHE-1277231

PATIENT
  Sex: Female

DRUGS (6)
  1. ROACTEMRA [Suspect]
     Indication: PRODUCT USED FOR UNKNOWN INDICATION
     Dosage: 600 MG TOTAL MONTHLY DOSE
     Route: 065
     Dates: start: 20110418
  2. ROACTEMRA [Suspect]
     Route: 065
     Dates: start: 20130409
  3. ROACTEMRA [Suspect]
     Route: 065
     Dates: start: 20130514
  4. ROACTEMRA [Suspect]
     Route: 065
     Dates: start: 20130618
  5. ROACTEMRA [Suspect]
     Route: 065
     Dates: start: 20130823
  6. IMETH [Concomitant]
     Route: 048
     Dates: start: 2009, end: 201309

REACTIONS (2)
  - Pancreatic carcinoma metastatic [Not Recovered/Not Resolved]
  - Cholestasis [Not Recovered/Not Resolved]
